FAERS Safety Report 9174622 (Version 3)
Quarter: 2013Q3

REPORT INFORMATION
  Report Type: Spontaneous
  Country: FR (occurrence: None)
  Receive Date: 20130315
  Receipt Date: 20130724
  Transmission Date: 20140515
  Serious: Yes (Death)
  Sender: FDA-Public Use
  Company Number: FR-20130142

PATIENT
  Age: 63 Year
  Sex: Female

DRUGS (1)
  1. LIPIODOL ULTRA FLUIDE [Suspect]
     Indication: LYMPHANGIOGRAM
     Route: 027
     Dates: start: 20130208, end: 20130208

REACTIONS (18)
  - Vomiting [None]
  - Acute respiratory distress syndrome [None]
  - Infected lymphocele [None]
  - Off label use [None]
  - Aspiration [None]
  - Pneumonia aspiration [None]
  - Superinfection [None]
  - Confusional state [None]
  - Pleural effusion [None]
  - Sinus tachycardia [None]
  - Post procedural haemorrhage [None]
  - Shock haemorrhagic [None]
  - Post procedural complication [None]
  - Enterococcal bacteraemia [None]
  - Sepsis [None]
  - Respiratory tract infection [None]
  - Pseudomonas infection [None]
  - Klebsiella infection [None]
